FAERS Safety Report 5474869-6 (Version None)
Quarter: 2007Q4

REPORT INFORMATION
  Report Type: 
  Country: None (occurrence: None)
  Receive Date: 20071002
  Receipt Date: 20070921
  Transmission Date: 20080405
  Serious: Yes (Hospitalization)
  Sender: FDA-Public Use
  Company Number: FR-ROCHE-514104

PATIENT
  Age: 65 Year
  Sex: Male

DRUGS (17)
  1. ROCEPHIN [Suspect]
     Indication: PROPHYLAXIS
     Dosage: FORM: INJECTABLE SOLUTION.
     Route: 042
     Dates: start: 20070722, end: 20070730
  2. ALLOPURINOL [Suspect]
     Indication: DRUG USE FOR UNKNOWN INDICATION
     Dosage: STARTED BEFORE FEBRUARY 2007.
     Route: 048
     Dates: start: 20070201
  3. AMIODARONE [Suspect]
     Indication: DRUG USE FOR UNKNOWN INDICATION
     Dosage: DOSAGE REGIMEN: 200 MG 5 D.
     Route: 048
  4. CIFLOX [Suspect]
     Indication: DRUG USE FOR UNKNOWN INDICATION
     Route: 048
     Dates: start: 20070724, end: 20070728
  5. PREVISCAN [Suspect]
     Indication: DRUG USE FOR UNKNOWN INDICATION
     Dosage: DOSAGE REGIMEN: 0.5 DOSE DAILY.
     Route: 048
     Dates: start: 20070201, end: 20070724
  6. OMEPRAZOLE [Suspect]
     Indication: DRUG USE FOR UNKNOWN INDICATION
     Dosage: STARTED BEFORE FEBRUARY 2005.
     Route: 048
     Dates: start: 20050201
  7. KARDEGIC [Suspect]
     Indication: DRUG USE FOR UNKNOWN INDICATION
     Dosage: STARTED BEFORE FEBRUARY 2005.
     Route: 048
     Dates: start: 20050201
  8. LEVOTHYROX [Suspect]
     Indication: HYPOTHYROIDISM
     Route: 048
     Dates: start: 20070128
  9. TAHOR [Suspect]
     Indication: DRUG USE FOR UNKNOWN INDICATION
     Dosage: STARTED BEFORE FEBRUARY 2005.
     Route: 048
     Dates: start: 20050201
  10. BURINEX [Concomitant]
  11. CELLCEPT [Concomitant]
  12. HYPERIUM [Concomitant]
  13. METFORMIN HCL [Concomitant]
  14. MOLSIDOMINE [Concomitant]
  15. MOVICOL [Concomitant]
  16. NEORAL [Concomitant]
  17. LANTUS [Concomitant]

REACTIONS (2)
  - ANAEMIA [None]
  - PERITONEAL HAEMORRHAGE [None]
